FAERS Safety Report 7807979-6 (Version None)
Quarter: 2011Q4

REPORT INFORMATION
  Report Type: 
  Country: None (occurrence: None)
  Receive Date: 20111011
  Receipt Date: 20111011
  Transmission Date: 20120403
  Serious: Yes (Other)
  Sender: FDA-Public Use
  Company Number: None

PATIENT
  Age: 22 Year
  Sex: Male
  Weight: 80.285 kg

DRUGS (1)
  1. CREST PRO-HEALTH MULTI-PURPOSE [Suspect]
     Indication: DENTAL DISORDER PROPHYLAXIS
     Dosage: 10ML
     Route: 048
     Dates: start: 20111005, end: 20111008

REACTIONS (4)
  - TOOTHACHE [None]
  - CHEMICAL BURN OF GASTROINTESTINAL TRACT [None]
  - DYSGEUSIA [None]
  - LIP PAIN [None]
